FAERS Safety Report 18413809 (Version 1)
Quarter: 2020Q4

REPORT INFORMATION
  Report Type: Report from Study
  Country: None (occurrence: US)
  Receive Date: 20201022
  Receipt Date: 20201022
  Transmission Date: 20210114
  Serious: Yes (Other)
  Sender: FDA-Public Use
  Company Number: US-ABBVIE-20K-163-3534713-00

PATIENT
  Age: 74 Year
  Sex: Male
  Weight: 90.8 kg

DRUGS (1)
  1. HUMIRA [Suspect]
     Active Substance: ADALIMUMAB
     Indication: PSORIATIC ARTHROPATHY
     Route: 058

REACTIONS (10)
  - Neuropathy peripheral [Unknown]
  - Psoriasis [Not Recovered/Not Resolved]
  - Contusion [Not Recovered/Not Resolved]
  - Vascular injury [Recovered/Resolved]
  - Scratch [Not Recovered/Not Resolved]
  - Renal disorder [Not Recovered/Not Resolved]
  - Onychomadesis [Recovering/Resolving]
  - Onychomadesis [Unknown]
  - Skin discolouration [Recovered/Resolved]
  - Fracture [Recovered/Resolved]

NARRATIVE: CASE EVENT DATE: 2013
